FAERS Safety Report 10726149 (Version 1)
Quarter: 2015Q1

REPORT INFORMATION
  Report Type: Spontaneous
  Country: DE (occurrence: DE)
  Receive Date: 20150121
  Receipt Date: 20150121
  Transmission Date: 20150721
  Serious: Yes (Other)
  Sender: FDA-Public Use
  Company Number: DE-SUN PHARMACEUTICAL INDUSTRIES LTD-2015SUN00093

PATIENT

DRUGS (4)
  1. NAB-PACLITAXEL [Suspect]
     Active Substance: PACLITAXEL
     Dosage: 125 MG/M2, UNK
     Route: 065
  2. NAB-PACLITAXEL [Suspect]
     Active Substance: PACLITAXEL
     Indication: PANCREATIC CARCINOMA METASTATIC
     Dosage: 100 MG/M2, ON D1, 8 AND 15 OF 28-DAY-CYCLE
     Route: 065
  3. GEMCITABINE [Suspect]
     Active Substance: GEMCITABINE\GEMCITABINE HYDROCHLORIDE
     Dosage: 800 MG/M2, D8-CYCLE3, D8-CYCLE4, D15-CYCLE5, D15-CYCLE6 +D8,15-CYCLE7.
     Route: 065
  4. GEMCITABINE [Suspect]
     Active Substance: GEMCITABINE\GEMCITABINE HYDROCHLORIDE
     Indication: PANCREATIC CARCINOMA METASTATIC
     Dosage: 1000 MG/M2, ON 1000 MG/M2, ON D1, 8 + 15 OF28-DAY-CYCLE D15-CYCLE6 +D8,15-CYCLE7
     Route: 065

REACTIONS (10)
  - Neutropenia [Unknown]
  - Disease progression [Unknown]
  - Thrombocytopenia [Unknown]
  - Neuropathy peripheral [Unknown]
  - Paronychia [Unknown]
  - Malignant neoplasm progression [None]
  - Cholangitis acute [Unknown]
  - Pyrexia [Unknown]
  - Alopecia [Unknown]
  - Pancreatic carcinoma metastatic [None]
